FAERS Safety Report 9348754 (Version 1)
Quarter: 2013Q2

REPORT INFORMATION
  Report Type: Spontaneous
  Country: US (occurrence: US)
  Receive Date: 20130614
  Receipt Date: 20130614
  Transmission Date: 20140414
  Serious: Yes (Other)
  Sender: FDA-Public Use
  Company Number: US-BAYER-2013-071888

PATIENT
  Age: 37 Year
  Sex: Female

DRUGS (15)
  1. YAZ [Suspect]
  2. YASMIN [Suspect]
  3. CELEXA [Concomitant]
     Dosage: 20 MG, UNK
  4. SEROQUEL [Concomitant]
     Dosage: 400 MG, UNK
  5. METFORMIN [Concomitant]
     Dosage: 500 MG, UNK
  6. ZOLOFT [Concomitant]
     Dosage: 100 MG, UNK
  7. KLONOPIN [Concomitant]
     Dosage: 1 MG, UNK
  8. LAMICTAL [Concomitant]
     Dosage: 200 MG, UNK
  9. PROTONIX [Concomitant]
     Dosage: 40 MG, UNK
  10. SIMVASTATIN [Concomitant]
     Dosage: 40 MG, UNK
  11. TRAZODONE [Concomitant]
  12. NAPROSYN [Concomitant]
     Dosage: 500 MG, UNK
  13. VICODIN [Concomitant]
  14. Z-PAK [Concomitant]
     Indication: PNEUMONIA
  15. NITROGLYCERIN [Concomitant]
     Indication: CHEST PAIN

REACTIONS (2)
  - Deep vein thrombosis [None]
  - Biliary dyskinesia [None]
